FAERS Safety Report 7572103-4 (Version None)
Quarter: 2011Q2

REPORT INFORMATION
  Report Type: 
  Country: None (occurrence: None)
  Receive Date: 20110624
  Receipt Date: 20110623
  Transmission Date: 20111010
  Serious: Yes (Hospitalization)
  Sender: FDA-Public Use
  Company Number: US-UCBSA-036009

PATIENT
  Age: 67 Year
  Sex: Female
  Weight: 140 kg

DRUGS (7)
  1. MIRAPEX [Concomitant]
  2. MESTINON [Concomitant]
  3. NEURONTIN [Concomitant]
  4. KEPPRA XR [Suspect]
     Route: 048
     Dates: start: 20110101
  5. TEGRETOL [Concomitant]
     Dosage: 100 MG QHS
  6. AVELOX [Concomitant]
  7. DILANTIN ER [Concomitant]

REACTIONS (3)
  - INAPPROPRIATE SCHEDULE OF DRUG ADMINISTRATION [None]
  - MEDICATION RESIDUE [None]
  - CELLULITIS [None]
